FAERS Safety Report 7578387-0 (Version None)
Quarter: 2011Q2

REPORT INFORMATION
  Report Type: 
  Country: None (occurrence: None)
  Receive Date: 20110628
  Receipt Date: 20110627
  Transmission Date: 20111010
  Serious: Yes (Life-Threatening, Hospitalization)
  Sender: FDA-Public Use
  Company Number: GXKR2011DE02097

PATIENT
  Sex: Male
  Weight: 72 kg

DRUGS (1)
  1. METHADONE HCL [Suspect]
     Indication: DEPENDENCE
     Dosage: UNK MG, UNK
     Route: 013
     Dates: start: 20110625

REACTIONS (5)
  - RHABDOMYOLYSIS [None]
  - VASOSPASM [None]
  - INCORRECT ROUTE OF DRUG ADMINISTRATION [None]
  - INTENTIONAL DRUG MISUSE [None]
  - BLOOD CREATINE PHOSPHOKINASE INCREASED [None]
